FAERS Safety Report 7471656-4 (Version None)
Quarter: 2011Q2

REPORT INFORMATION
  Report Type: 
  Country: None (occurrence: None)
  Receive Date: 20110502
  Receipt Date: 20110420
  Transmission Date: 20111010
  Serious: Yes (Other)
  Sender: FDA-Public Use
  Company Number: 2011000714

PATIENT
  Age: 53 Year
  Sex: Female

DRUGS (8)
  1. LYRICA [Concomitant]
  2. TARCEVA [Suspect]
     Indication: LUNG CANCER METASTATIC
     Dosage: (150 MG,1 X PER DAY),ORAL
     Route: 048
     Dates: start: 20110125
  3. TARCEVA [Suspect]
     Indication: METASTASES TO CENTRAL NERVOUS SYSTEM
     Dosage: (150 MG,1 X PER DAY),ORAL
     Route: 048
     Dates: start: 20110125
  4. DILAUDID [Concomitant]
  5. NAPROXEN [Concomitant]
  6. LOVENOX [Concomitant]
  7. AVELOX [Concomitant]
  8. PANTOLOC (PANTOPRAZOLE) [Concomitant]

REACTIONS (4)
  - RASH [None]
  - DRY SKIN [None]
  - SYNOVIAL CYST [None]
  - JOINT SWELLING [None]
